FAERS Safety Report 11106935 (Version 1)
Quarter: 2015Q2

REPORT INFORMATION
  Report Type: Spontaneous
  Country: US (occurrence: US)
  Receive Date: 20150512
  Receipt Date: 20150512
  Transmission Date: 20150821
  Serious: No
  Sender: FDA-Public Use
  Company Number: US-BAUSCH-BL-2014-002203

PATIENT
  Sex: Male
  Weight: 74.91 kg

DRUGS (4)
  1. LATANOPROST OPHTHALMIC SOLUTION 0.005% [Suspect]
     Active Substance: LATANOPROST
     Indication: GLAUCOMA
     Dosage: 1 DROP IN RIGHT EYE
     Route: 047
     Dates: start: 20131104
  2. LOSARTAN [Concomitant]
     Active Substance: LOSARTAN
     Indication: HYPERTENSION
  3. HYDROCHLOROTHIAZIDE. [Concomitant]
     Active Substance: HYDROCHLOROTHIAZIDE
     Indication: HYPERTENSION
  4. HYDRAN [Concomitant]
     Active Substance: DIETARY SUPPLEMENT
     Indication: HYPERTENSION

REACTIONS (2)
  - Eye irritation [Unknown]
  - Dry eye [Unknown]
